FAERS Safety Report 6171107-6 (Version None)
Quarter: 2009Q2

REPORT INFORMATION
  Report Type: 
  Country: None (occurrence: None)
  Receive Date: 20090429
  Receipt Date: 20090420
  Transmission Date: 20091009
  Serious: Yes (Hospitalization)
  Sender: FDA-Public Use
  Company Number: PHHY2009IE06718

PATIENT
  Sex: Female

DRUGS (2)
  1. CLOZARIL [Suspect]
     Indication: SCHIZOPHRENIA
     Dosage: 500 MG DAILY
     Route: 048
     Dates: start: 20020308
  2. FLUOXETINE HCL [Concomitant]
     Indication: DEPRESSION
     Dosage: 40 MG DAILY
     Route: 048
     Dates: start: 20061129

REACTIONS (3)
  - CONSTIPATION [None]
  - INTESTINAL PROLAPSE [None]
  - SURGERY [None]
